FAERS Safety Report 9752041 (Version 1)
Quarter: 2013Q4

REPORT INFORMATION
  Report Type: Spontaneous
  Country: US (occurrence: None)
  Receive Date: 20131211
  Receipt Date: 20131211
  Transmission Date: 20140711
  Serious: Yes (Hospitalization)
  Sender: FDA-Public Use
  Company Number: None

PATIENT
  Age: 72 Year
  Sex: Female
  Weight: 82.1 kg

DRUGS (22)
  1. BENAZEPRIL [Suspect]
     Indication: BLOOD PRESSURE
     Route: 048
  2. NORVASC [Concomitant]
  3. BACLOFEN [Concomitant]
  4. BENAZEPRIL [Concomitant]
  5. BENZONATATE [Concomitant]
  6. BUDESONIDE [Concomitant]
  7. CETIRIZINE [Concomitant]
  8. CITALOPRAM [Concomitant]
  9. CLONAZEPAM [Concomitant]
  10. DEXLANSOPRAZOLE [Concomitant]
  11. ERGOCALCIFEROL [Concomitant]
  12. TOVIAZ [Concomitant]
  13. LASIX [Concomitant]
  14. DUONEB [Concomitant]
  15. MULTIVITAMIN [Concomitant]
  16. MILK OF MAGNESIA [Concomitant]
  17. ANTIVERT [Concomitant]
  18. FISH OIL [Concomitant]
  19. K-DUR [Concomitant]
  20. RED YEAST RICE [Concomitant]
  21. REQUIP [Concomitant]
  22. ULTRAM [Suspect]

REACTIONS (2)
  - Angioedema [None]
  - Anaphylactic reaction [None]
